FAERS Safety Report 23749729 (Version 1)
Quarter: 2024Q2

REPORT INFORMATION
  Report Type: Spontaneous
  Country: PT (occurrence: PT)
  Receive Date: 20240416
  Receipt Date: 20240416
  Transmission Date: 20240716
  Serious: Yes (Hospitalization)
  Sender: FDA-Public Use
  Company Number: PT-INFARMED-J202403-776

PATIENT
  Age: 64 Year
  Sex: Female

DRUGS (2)
  1. AZITHROMYCIN [Suspect]
     Active Substance: AZITHROMYCIN
     Indication: Urinary tract infection
     Dosage: 1 DOSAGE FORM, ONCE A DAY (FOR 6 DAYS)
     Route: 048
     Dates: start: 20240124
  2. Daflon [Concomitant]
     Indication: Product used for unknown indication
     Dosage: UNK UNK, AS NECESSARY (EM SOS)
     Route: 048

REACTIONS (1)
  - Hyponatraemia [Recovered/Resolved]

NARRATIVE: CASE EVENT DATE: 20240129
